FAERS Safety Report 23835927 (Version 2)
Quarter: 2024Q2

REPORT INFORMATION
  Report Type: Spontaneous
  Country: US (occurrence: US)
  Receive Date: 20240509
  Receipt Date: 20240621
  Transmission Date: 20240715
  Serious: Yes (Death, Hospitalization)
  Sender: FDA-Public Use
  Company Number: US-Merck Healthcare KGaA-2024025087

PATIENT
  Age: 43 Year
  Sex: Male

DRUGS (1)
  1. TEPOTINIB [Suspect]
     Active Substance: TEPOTINIB
     Indication: Product used for unknown indication
     Route: 048
     Dates: start: 20231120, end: 20240306

REACTIONS (3)
  - Hypoxia [Fatal]
  - Respiratory distress [Unknown]
  - Pneumonectomy [Unknown]

NARRATIVE: CASE EVENT DATE: 20240311
